FAERS Safety Report 6359354-1 (Version None)
Quarter: 2009Q3

REPORT INFORMATION
  Report Type: 
  Country: None (occurrence: None)
  Receive Date: 20090917
  Receipt Date: 20090914
  Transmission Date: 20100115
  Serious: Yes (Life-Threatening, Other)
  Sender: FDA-Public Use
  Company Number: JP-BRISTOL-MYERS SQUIBB COMPANY-14779730

PATIENT
  Age: 68 Year
  Sex: Female
  Weight: 47 kg

DRUGS (10)
  1. ERBITUX [Suspect]
     Indication: COLON CANCER
     Dosage: 335MG: 10JUN09-10JUN09 LAST DOSE: 10JUN09
     Route: 042
     Dates: start: 20090603, end: 20090610
  2. IRINOTECAN HCL [Suspect]
     Indication: COLON CANCER
     Route: 042
     Dates: start: 20090603, end: 20090603
  3. DIPHENHYDRAMINE HCL [Concomitant]
     Indication: PREMEDICATION
     Dosage: FORM-TABS
     Route: 048
     Dates: start: 20090603, end: 20090610
  4. DEXART [Concomitant]
     Indication: PREMEDICATION
     Route: 042
     Dates: start: 20090603, end: 20090610
  5. NAUZELIN [Concomitant]
     Indication: ANTIEMETIC SUPPORTIVE CARE
     Dosage: FORM-TABS
     Route: 048
     Dates: start: 20090603, end: 20090606
  6. ZOFRAN [Concomitant]
     Indication: ANTIEMETIC SUPPORTIVE CARE
     Dosage: FORM-TABS
     Route: 048
     Dates: start: 20090604, end: 20090605
  7. DECADRON [Concomitant]
     Indication: ANTIEMETIC SUPPORTIVE CARE
     Dosage: FORM-TABS
     Route: 048
     Dates: start: 20090603, end: 20090606
  8. DEPAS [Concomitant]
     Indication: ANTIEMETIC SUPPORTIVE CARE
     Dosage: FORM-TABS
     Route: 048
     Dates: start: 20090603, end: 20090609
  9. MAGNESIUM OXIDE [Concomitant]
     Dosage: FORM-GRANULES
     Route: 048
     Dates: start: 20090603, end: 20090606
  10. URSO 250 [Concomitant]
     Indication: CHOLECYSTITIS
     Dosage: FORM-TABS
     Route: 048
     Dates: start: 20090603, end: 20090606

REACTIONS (2)
  - BLOOD BILIRUBIN INCREASED [None]
  - NAUSEA [None]
